FAERS Safety Report 17174735 (Version 1)
Quarter: 2019Q4

REPORT INFORMATION
  Report Type: Spontaneous
  Country: US (occurrence: US)
  Receive Date: 20191219
  Receipt Date: 20191219
  Transmission Date: 20200122
  Serious: No
  Sender: FDA-Public Use
  Company Number: US-UCBSA-120189

PATIENT
  Age: 20 Year
  Sex: Female

DRUGS (1)
  1. CIMZIA [Suspect]
     Active Substance: CERTOLIZUMAB PEGOL
     Indication: CROHN^S DISEASE
     Dosage: STRENGTH:200 MG
     Route: 058
     Dates: start: 20110311, end: 20140417

REACTIONS (4)
  - Paraesthesia [Recovered/Resolved]
  - Arthralgia [Recovered/Resolved]
  - Dizziness [Recovered/Resolved]
  - Nail infection [Recovered/Resolved]

NARRATIVE: CASE EVENT DATE: 201308
